FAERS Safety Report 5725751-8 (Version None)
Quarter: 2008Q2

REPORT INFORMATION
  Report Type: 
  Country: None (occurrence: None)
  Receive Date: 20080501
  Receipt Date: 20080428
  Transmission Date: 20081010
  Serious: Yes (Other)
  Sender: FDA-Public Use
  Company Number: US-GENENTECH-258165

PATIENT
  Sex: Female
  Weight: 97.9 kg

DRUGS (1)
  1. OMALIZUMAB [Suspect]
     Indication: ASTHMA
     Dosage: UNK, UNK
     Route: 058
     Dates: start: 20040713

REACTIONS (1)
  - BRONCHITIS [None]
